FAERS Safety Report 17869844 (Version 1)
Quarter: 2020Q2

REPORT INFORMATION
  Report Type: Spontaneous
  Country: US (occurrence: US)
  Receive Date: 20200608
  Receipt Date: 20200608
  Transmission Date: 20200714
  Serious: No
  Sender: FDA-Public Use
  Company Number: US-TARO-2019TAR00595

PATIENT
  Sex: Female
  Weight: 11.34 kg

DRUGS (2)
  1. FEVERALL INFANTS [Suspect]
     Active Substance: ACETAMINOPHEN
     Indication: PYREXIA
     Dosage: 80 MG, EVERY 6-8 HOURS AS NEEDED
     Route: 054
     Dates: end: 201907
  2. FEVERALL INFANTS [Suspect]
     Active Substance: ACETAMINOPHEN
     Indication: PAIN
     Dosage: 80 MG, EVERY 6-8 HOURS AS NEEDED
     Route: 054
     Dates: start: 20190814

REACTIONS (3)
  - Drug ineffective [Recovered/Resolved]
  - Product quality issue [Not Recovered/Not Resolved]
  - Inappropriate schedule of product administration [Recovered/Resolved]
